FAERS Safety Report 6912664-9 (Version None)
Quarter: 2010Q3

REPORT INFORMATION
  Report Type: 
  Country: None (occurrence: None)
  Receive Date: 20100806
  Receipt Date: 20080908
  Transmission Date: 20110219
  Serious: No
  Sender: FDA-Public Use
  Company Number: US-PFIZER INC-2008076213

PATIENT
  Sex: Female
  Weight: 61.363 kg

DRUGS (6)
  1. DETROL LA [Suspect]
     Indication: URINARY INCONTINENCE
     Dates: start: 20080903
  2. LEVOXYL [Concomitant]
  3. LISINOPRIL [Concomitant]
  4. MULTI-VITAMINS [Concomitant]
  5. CALCIUM [Concomitant]
  6. ACETYLSALICYLIC ACID SRT [Concomitant]

REACTIONS (1)
  - URINE OUTPUT INCREASED [None]
